FAERS Safety Report 23262552 (Version 3)
Quarter: 2025Q1

REPORT INFORMATION
  Report Type: Spontaneous
  Country: US (occurrence: US)
  Receive Date: 20231205
  Receipt Date: 20250225
  Transmission Date: 20250409
  Serious: No
  Sender: AMGEN
  Company Number: US-AMGEN-USASP2023215970

PATIENT
  Age: 59 Year
  Sex: Male

DRUGS (2)
  1. OTEZLA [Suspect]
     Active Substance: APREMILAST
     Indication: Psoriasis
     Dosage: 30 MILLIGRAM, BID
     Route: 048
     Dates: start: 20230928
  2. ADVIL [Concomitant]
     Active Substance: IBUPROFEN

REACTIONS (8)
  - Therapy non-responder [Unknown]
  - Product dose omission issue [Unknown]
  - Infection [Unknown]
  - Pain [Unknown]
  - Anxiety [Unknown]
  - Claustrophobia [Unknown]
  - Diarrhoea [Unknown]
  - Fatigue [Unknown]

NARRATIVE: CASE EVENT DATE: 20230101
